FAERS Safety Report 8983880 (Version 1)
Quarter: 2012Q4

REPORT INFORMATION
  Report Type: 
  Country: US (occurrence: US)
  Receive Date: 20121224
  Receipt Date: 20121224
  Transmission Date: 20130627
  Serious: Yes (Other)
  Sender: FDA-Public Use
  Company Number: US-ROCHE-1172921

PATIENT
  Age: 58 Year
  Sex: Female

DRUGS (14)
  1. TORADOL [Suspect]
     Indication: PRODUCT USED FOR UNKNOWN INDICATION
     Route: 065
  2. ACCUPRIL [Concomitant]
     Route: 048
  3. ELAVIL [Concomitant]
     Route: 048
  4. TENORMIN [Concomitant]
     Route: 048
  5. LIPITOR [Concomitant]
     Route: 048
  6. CHOLECALCIFEROL [Concomitant]
     Dosage: 5000 units
     Route: 048
  7. CYANOCOBALAMIN [Concomitant]
     Route: 065
  8. VASOTEC [Concomitant]
     Route: 048
  9. FERROUSUL (UNK INGREDIENTS) [Concomitant]
     Route: 048
  10. NEURONTIN [Concomitant]
     Route: 048
  11. PAXIL [Concomitant]
     Route: 048
  12. PRAVACHOL [Concomitant]
     Route: 048
  13. PROTONIX [Concomitant]
     Route: 048
  14. MORPHINE [Concomitant]

REACTIONS (9)
  - Anaemia [Unknown]
  - Depression [Unknown]
  - Essential hypertension [Unknown]
  - Insomnia [Unknown]
  - Anxiety disorder [Unknown]
  - Gastrooesophageal reflux disease [Unknown]
  - Abdominal pain [Unknown]
  - Senile osteoporosis [Unknown]
  - Fibromyalgia [Unknown]
